FAERS Safety Report 12977257 (Version 2)
Quarter: 2020Q1

REPORT INFORMATION
  Report Type: Spontaneous
  Country: US (occurrence: US)
  Receive Date: 20161128
  Receipt Date: 20200317
  Transmission Date: 20200409
  Serious: No
  Sender: FDA-Public Use
  Company Number: US-JAZZ-2016-US-019312

PATIENT
  Sex: Female

DRUGS (11)
  1. YAZZ [Concomitant]
  2. XYREM [Suspect]
     Active Substance: SODIUM OXYBATE
     Dosage: 3 G, BID
     Route: 048
     Dates: start: 201608, end: 2016
  3. XYREM [Suspect]
     Active Substance: SODIUM OXYBATE
     Dosage: 4.5 G, BID
     Route: 048
     Dates: start: 200701, end: 2014
  4. PROVIGIL [Concomitant]
     Active Substance: MODAFINIL
  5. ZOLOFT [Concomitant]
     Active Substance: SERTRALINE HYDROCHLORIDE
  6. XYREM [Suspect]
     Active Substance: SODIUM OXYBATE
     Dosage: DOSE ADJUSTMENTS
     Route: 048
     Dates: start: 200605, end: 200701
  7. NUVIGIL [Concomitant]
     Active Substance: ARMODAFINIL
  8. PRENATAL                           /00231801/ [Concomitant]
     Active Substance: VITAMINS
  9. PRILOSEC DR                           /00661201/ [Concomitant]
  10. CLARITIN [GLICLAZIDE] [Concomitant]
     Active Substance: GLICLAZIDE
  11. XYREM [Suspect]
     Active Substance: SODIUM OXYBATE
     Indication: NARCOLEPSY
     Dosage: 3 G, BID
     Route: 048
     Dates: start: 200601, end: 200605

REACTIONS (1)
  - Exposure during pregnancy [Unknown]
